FAERS Safety Report 24211473 (Version 1)
Quarter: 2024Q3

REPORT INFORMATION
  Report Type: Spontaneous
  Country: US (occurrence: None)
  Receive Date: 20240814
  Receipt Date: 20240814
  Transmission Date: 20241017
  Serious: No
  Sender: Public
  Company Number: None

PATIENT
  Age: 57 Year
  Sex: Female
  Weight: 65.77 kg

DRUGS (1)
  1. TAFINLAR [Suspect]
     Active Substance: DABRAFENIB MESYLATE
     Indication: Carcinoid tumour of the small bowel
     Dosage: FREQUENCY : DAILY;?
     Route: 048

REACTIONS (5)
  - Loss of consciousness [None]
  - Chills [None]
  - Tremor [None]
  - Glossodynia [None]
  - Therapy interrupted [None]

NARRATIVE: CASE EVENT DATE: 20240708
